FAERS Safety Report 16798471 (Version 1)
Quarter: 2019Q3

REPORT INFORMATION
  Report Type: Spontaneous
  Country: PL (occurrence: PL)
  Receive Date: 20190912
  Receipt Date: 20190912
  Transmission Date: 20191005
  Serious: Yes (Death)
  Sender: FDA-Public Use
  Company Number: PL-ACTELION-A-CH2019-195458

PATIENT
  Age: 69 Year
  Sex: Female

DRUGS (8)
  1. BISOCARD [Concomitant]
     Active Substance: BISOPROLOL
     Dosage: 5 MG, BID
  2. OPSUMIT [Suspect]
     Active Substance: MACITENTAN
     Indication: PULMONARY ARTERIAL HYPERTENSION
     Dosage: UNK
     Route: 048
     Dates: start: 201902
  3. XARELTO [Concomitant]
     Active Substance: RIVAROXABAN
     Dosage: 20 MG, QD
  4. EPLENOCARD [Concomitant]
     Dosage: 25 MG, QD
  5. KALIPOZ [Concomitant]
     Active Substance: POTASSIUM CHLORIDE
     Dosage: 2 DF, BID
  6. HYDROCHLOROTHIAZIDE. [Concomitant]
     Active Substance: HYDROCHLOROTHIAZIDE
     Dosage: 25 MG, QD
  7. FUROSEMID [Concomitant]
     Active Substance: FUROSEMIDE
     Dosage: 80 MG, BID
  8. SILDENAFIL. [Concomitant]
     Active Substance: SILDENAFIL
     Indication: PULMONARY ARTERIAL HYPERTENSION
     Dosage: 100 MG, TID
     Dates: start: 201902

REACTIONS (3)
  - Respiratory tract infection [Fatal]
  - Cardiac failure congestive [Fatal]
  - Sudden cardiac death [Fatal]

NARRATIVE: CASE EVENT DATE: 2019
